FAERS Safety Report 25318160 (Version 1)
Quarter: 2025Q2

REPORT INFORMATION
  Report Type: Spontaneous
  Country: US (occurrence: US)
  Receive Date: 20250515
  Receipt Date: 20250515
  Transmission Date: 20250717
  Serious: Yes (Other)
  Sender: BSO LLC
  Company Number: US-BSO LLC-2176745

PATIENT
  Age: 67 Year
  Sex: Male
  Weight: 92.273 kg

DRUGS (1)
  1. TESTOSTERONE [Suspect]
     Active Substance: TESTOSTERONE
     Indication: Hypogonadism male
     Dates: start: 20250417, end: 20250424

REACTIONS (1)
  - Death [Unknown]

NARRATIVE: CASE EVENT DATE: 20250424
